FAERS Safety Report 20292220 (Version 1)
Quarter: 2022Q1

REPORT INFORMATION
  Report Type: Spontaneous
  Country: CN (occurrence: CN)
  Receive Date: 20220104
  Receipt Date: 20220104
  Transmission Date: 20220423
  Serious: Yes (Other)
  Sender: FDA-Public Use
  Company Number: CN-PFIZER INC-202101843639

PATIENT
  Age: 27 Year
  Sex: Female

DRUGS (2)
  1. MEDROL [Suspect]
     Active Substance: METHYLPREDNISOLONE
     Indication: Antiinflammatory therapy
     Dosage: 9 MG, 1X/DAY
     Route: 048
     Dates: start: 20211031, end: 20211109
  2. CELLCEPT [Suspect]
     Active Substance: MYCOPHENOLATE MOFETIL
     Indication: Immunosuppression
     Dosage: 0.5 G, 2X/DAY
     Route: 048
     Dates: start: 20211031, end: 20211109

REACTIONS (4)
  - Infection [Unknown]
  - Cough [Unknown]
  - Productive cough [Unknown]
  - Sputum decreased [Unknown]

NARRATIVE: CASE EVENT DATE: 20211109
